FAERS Safety Report 4317902-7 (Version None)
Quarter: 2004Q1

REPORT INFORMATION
  Report Type: 
  Country: None (occurrence: None)
  Receive Date: 20040316
  Receipt Date: 20040218
  Transmission Date: 20041129
  Serious: Yes (Hospitalization)
  Sender: FDA-Public Use
  Company Number: JP-ROCHE-359283

PATIENT
  Age: 37 Year
  Sex: Female
  Weight: 67.8 kg

DRUGS (7)
  1. TAMIFLU [Suspect]
     Route: 048
     Dates: start: 20040209, end: 20040211
  2. OZEX [Concomitant]
     Route: 048
     Dates: start: 20040209, end: 20040211
  3. VOLTAREN [Concomitant]
     Route: 054
     Dates: start: 20040209, end: 20040213
  4. PL [Concomitant]
     Route: 048
     Dates: start: 20040209, end: 20040211
  5. LETRAC [Concomitant]
     Route: 048
     Dates: start: 20040209, end: 20040211
  6. SELBEX [Concomitant]
     Route: 048
     Dates: start: 20040209, end: 20040211
  7. DIHYDROCODEINE BITARTRATE INJ [Concomitant]
     Route: 048
     Dates: start: 20040209, end: 20040211

REACTIONS (1)
  - RENAL IMPAIRMENT [None]
